FAERS Safety Report 10369267 (Version 1)
Quarter: 2014Q1

REPORT INFORMATION
  Report Type: Spontaneous
  Country: US (occurrence: None)
  Receive Date: 20140306
  Receipt Date: 20140306
  Transmission Date: 20141002
  Serious: Yes (Hospitalization)
  Sender: FDA-Public Use
  Company Number: 163-21880-13023988

PATIENT
  Age: 65 Year
  Sex: Female
  Weight: 70.7 kg

DRUGS (12)
  1. REVLIMID (LENALIDOMIDE) (CAPSULES) [Suspect]
     Indication: PLASMA CELL MYELOMA
     Route: 048
     Dates: start: 20130220
  2. ZOMETA (ZOLEDRONIC ACID) [Concomitant]
  3. CHONDROITIN SULFATE [Concomitant]
  4. DEXAMETHASONE [Concomitant]
  5. IVERMECTIN [Concomitant]
  6. LEXAPRO (ESCITALOPRAM OXALATE) [Concomitant]
  7. MULTIVITAMINS [Concomitant]
  8. PRILOSEC (OMEPRAZOLE) [Concomitant]
  9. QUININE (QUININE) [Concomitant]
  10. VICODIN [Concomitant]
  11. GRANISETRON [Concomitant]
  12. IV FLUIDS (I.V. SOLUTIONS) [Concomitant]

REACTIONS (2)
  - Back pain [None]
  - Bone pain [None]
